FAERS Safety Report 9178711 (Version 1)
Quarter: 2013Q1

REPORT INFORMATION
  Report Type: Report from Study
  Country: CO (occurrence: CO)
  Receive Date: 20130321
  Receipt Date: 20130321
  Transmission Date: 20140127
  Serious: Yes (Hospitalization)
  Sender: FDA-Public Use
  Company Number: CO-ROCHE-1204423

PATIENT
  Age: 3 Year
  Sex: Female

DRUGS (1)
  1. DORNASE ALFA [Suspect]
     Indication: CYSTIC FIBROSIS
     Route: 045
     Dates: start: 20110919

REACTIONS (2)
  - Gastroenteritis [Recovered/Resolved]
  - Varicella [Recovering/Resolving]
